FAERS Safety Report 19702313 (Version 1)
Quarter: 2021Q3

REPORT INFORMATION
  Report Type: Other
  Country: CN (occurrence: CN)
  Receive Date: 20210814
  Receipt Date: 20210814
  Transmission Date: 20211014
  Serious: Yes (Other)
  Sender: FDA-Public Use
  Company Number: CN-ROCHE-2889371

PATIENT

DRUGS (2)
  1. CAPECITABINE. [Suspect]
     Active Substance: CAPECITABINE
     Indication: BREAST CANCER METASTATIC
     Dosage: FROM DAY 1 TO DAY 14
     Route: 065
  2. LOBAPLATIN [Suspect]
     Active Substance: LOBAPLATIN
     Indication: BREAST CANCER METASTATIC
     Dosage: FOR 3 WEEKS AS 1 CYCLE
     Route: 065

REACTIONS (10)
  - Platelet count decreased [Unknown]
  - Decreased appetite [Unknown]
  - Palmar-plantar erythrodysaesthesia syndrome [Unknown]
  - Thrombocytopenia [Unknown]
  - Gastrointestinal disorder [Unknown]
  - Neutropenia [Unknown]
  - Vomiting [Unknown]
  - Myelosuppression [Unknown]
  - Nausea [Unknown]
  - Fatigue [Unknown]
